FAERS Safety Report 9328342 (Version 1)
Quarter: 2013Q2

REPORT INFORMATION
  Report Type: Spontaneous
  Country: US (occurrence: US)
  Receive Date: 20130604
  Receipt Date: 20130604
  Transmission Date: 20140414
  Serious: Yes (Hospitalization)
  Sender: FDA-Public Use
  Company Number: US-SANOFI-AVENTIS-2012SA058529

PATIENT
  Age: 87 Year
  Sex: Female

DRUGS (5)
  1. SOLOSTAR [Suspect]
     Indication: TYPE 2 DIABETES MELLITUS
     Dosage: DOSE:26 UNIT(S)
     Route: 058
  2. LANTUS [Suspect]
     Indication: TYPE 2 DIABETES MELLITUS
     Dosage: DOSE:20 UNIT(S)
     Route: 058
     Dates: start: 20110824
  3. ATORVASTATIN [Concomitant]
     Indication: BLOOD CHOLESTEROL ABNORMAL
     Dates: start: 20091026
  4. PAROXETINE HYDROCHLORIDE [Concomitant]
     Indication: DEPRESSION
     Dates: start: 20110824
  5. LEVOTHYROXINE [Concomitant]
     Indication: THYROID DISORDER
     Dates: start: 20100728

REACTIONS (1)
  - Hyperglycaemia [Unknown]
